FAERS Safety Report 8031336-3 (Version None)
Quarter: 2012Q1

REPORT INFORMATION
  Report Type: 
  Country: None (occurrence: None)
  Receive Date: 20120109
  Receipt Date: 20111230
  Transmission Date: 20120608
  Serious: Yes (Hospitalization)
  Sender: FDA-Public Use
  Company Number: CN-GLAXOSMITHKLINE-B0772954A

PATIENT
  Sex: Female

DRUGS (1)
  1. PROPAFENONE HCL [Suspect]
     Indication: ARRHYTHMIA PROPHYLAXIS
     Dosage: 150MG THREE TIMES PER DAY
     Route: 048
     Dates: start: 20111213, end: 20111201

REACTIONS (4)
  - VISION BLURRED [None]
  - ATRIAL FLUTTER [None]
  - DRY MOUTH [None]
  - HYPOTENSION [None]
